FAERS Safety Report 12423239 (Version 1)
Quarter: 2016Q2

REPORT INFORMATION
  Report Type: Spontaneous
  Country: IT (occurrence: IT)
  Receive Date: 20160601
  Receipt Date: 20160601
  Transmission Date: 20160815
  Serious: Yes (Hospitalization)
  Sender: FDA-Public Use
  Company Number: IT-ASTELLAS-2016US020937

PATIENT
  Age: 57 Year
  Sex: Male

DRUGS (2)
  1. TACROLIMUS. [Suspect]
     Active Substance: TACROLIMUS
     Indication: HEART TRANSPLANT
     Dosage: UNK, UNKNOWN FREQ.
     Route: 065
  2. TACROLIMUS. [Suspect]
     Active Substance: TACROLIMUS
     Route: 048

REACTIONS (6)
  - Enterocolonic fistula [Recovered/Resolved]
  - Jejunal perforation [Recovered/Resolved]
  - Peritonitis [Recovered/Resolved]
  - Intestinal fistula [Recovered/Resolved]
  - Diverticulitis [Recovered/Resolved]
  - Diverticulum [Recovered/Resolved]
